FAERS Safety Report 14517719 (Version 2)
Quarter: 2018Q1

REPORT INFORMATION
  Report Type: Report from Study
  Country: JP (occurrence: JP)
  Receive Date: 20180212
  Receipt Date: 20180321
  Transmission Date: 20180509
  Serious: Yes (Death)
  Sender: FDA-Public Use
  Company Number: JP-JT-EVA201800331KERYXP-001

PATIENT
  Age: 84 Year
  Sex: Male
  Weight: 65 kg

DRUGS (11)
  1. MIYA-BM [Concomitant]
     Active Substance: CLOSTRIDIUM BUTYRICUM SPORES STRAIN M-55
     Dosage: 3 DF, QD
     Route: 048
  2. NESP [Concomitant]
     Active Substance: DARBEPOETIN ALFA
     Indication: NEPHROGENIC ANAEMIA
     Dosage: 30 MICRO-G, UNK
     Route: 042
  3. FEXOFENADINE HYDROCHLORIDE. [Concomitant]
     Active Substance: FEXOFENADINE HYDROCHLORIDE
     Dosage: 120 MG, QD
     Route: 048
  4. VOGLIBOSE [Concomitant]
     Active Substance: VOGLIBOSE
     Dosage: 0.9 MG, QD
     Route: 048
  5. RIONA [Suspect]
     Active Substance: FERRIC CITRATE ANHYDROUS
     Indication: HYPERPHOSPHATAEMIA
     Dosage: 250 MG, QD
     Route: 048
     Dates: start: 20170110, end: 20170813
  6. EPADEL-S [Concomitant]
     Active Substance: ICOSAPENT ETHYL
     Dosage: 2 DF, QD
     Route: 048
  7. ONGLYZA [Concomitant]
     Active Substance: SAXAGLIPTIN HYDROCHLORIDE
     Dosage: 2.5 MG, QD
     Route: 048
  8. COMPLAVIN [Concomitant]
     Active Substance: ASPIRIN\CLOPIDOGREL BISULFATE
     Dosage: 1 DF, QD
     Route: 048
  9. TAKEPRON [Concomitant]
     Active Substance: LANSOPRAZOLE
     Indication: HYPERCHLORHYDRIA
     Dosage: 15 MG, QD
     Route: 048
  10. NESP [Concomitant]
     Active Substance: DARBEPOETIN ALFA
     Dosage: 30 MICRO-G, UNK
     Route: 042
  11. ARTIST [Concomitant]
     Active Substance: CARVEDILOL
     Dosage: 5 MG, QD
     Route: 048

REACTIONS (1)
  - Cerebral infarction [Fatal]

NARRATIVE: CASE EVENT DATE: 20170813
